FAERS Safety Report 7181628-5 (Version None)
Quarter: 2010Q4

REPORT INFORMATION
  Report Type: 
  Country: None (occurrence: None)
  Receive Date: 20101221
  Receipt Date: 20100427
  Transmission Date: 20110411
  Serious: No
  Sender: FDA-Public Use
  Company Number: US-AMGEN-TCS409058

PATIENT

DRUGS (2)
  1. ENBREL [Suspect]
     Indication: RHEUMATOID ARTHRITIS
     Dosage: 50 MG, QWK
     Route: 058
     Dates: start: 20090526
  2. DIPHENHYDRAMINE HYDROCHLORIDE [Concomitant]

REACTIONS (6)
  - BLOOD PRESSURE INCREASED [None]
  - CHONDROPATHY [None]
  - INJECTION SITE ERYTHEMA [None]
  - INJECTION SITE PRURITUS [None]
  - INJECTION SITE RASH [None]
  - RASH GENERALISED [None]
